FAERS Safety Report 9373306 (Version 1)
Quarter: 2013Q2

REPORT INFORMATION
  Report Type: Spontaneous
  Country: KR (occurrence: KR)
  Receive Date: 20130627
  Receipt Date: 20130627
  Transmission Date: 20140414
  Serious: Yes (Death, Hospitalization)
  Sender: FDA-Public Use
  Company Number: KR-VIIV HEALTHCARE LIMITED-B0791305A

PATIENT
  Age: 44 Year
  Sex: Male
  Weight: 53.6 kg

DRUGS (3)
  1. ZIAGEN [Suspect]
     Indication: HIV INFECTION
     Dosage: 600MG PER DAY
     Route: 048
     Dates: start: 20120209, end: 20120318
  2. KALETRA [Concomitant]
     Indication: HIV INFECTION
     Dates: start: 20090525, end: 20120318
  3. LAMIVUDINE-HIV [Concomitant]
     Indication: HIV INFECTION
     Dates: start: 20060420, end: 20120318

REACTIONS (2)
  - Cardiac failure [Fatal]
  - Cardiac arrest [Fatal]
